FAERS Safety Report 10499454 (Version 3)
Quarter: 2014Q4

REPORT INFORMATION
  Report Type: Spontaneous
  Country: DE (occurrence: JP)
  Receive Date: 20141006
  Receipt Date: 20141106
  Transmission Date: 20150528
  Serious: Yes (Hospitalization)
  Sender: FDA-Public Use
  Company Number: JP-FRI-1000071206

PATIENT
  Age: 64 Year
  Sex: Male

DRUGS (2)
  1. MEMANTINE [Suspect]
     Active Substance: MEMANTINE
     Indication: CEREBROVASCULAR DISORDER
     Dosage: 5 MG
     Route: 048
     Dates: start: 20140704, end: 20140706
  2. KEPPRA [Concomitant]
     Active Substance: LEVETIRACETAM
     Dates: start: 201305

REACTIONS (4)
  - Muscular weakness [Recovered/Resolved]
  - Depressed level of consciousness [Recovered/Resolved]
  - Off label use [Recovered/Resolved]
  - Vomiting [Recovered/Resolved]

NARRATIVE: CASE EVENT DATE: 20140704
